FAERS Safety Report 7338694-3 (Version None)
Quarter: 2011Q1

REPORT INFORMATION
  Report Type: 
  Country: None (occurrence: None)
  Receive Date: 20110308
  Receipt Date: 20110124
  Transmission Date: 20110831
  Serious: Yes (Other)
  Sender: FDA-Public Use
  Company Number: A0908618A

PATIENT
  Sex: Female

DRUGS (2)
  1. ADVAIR DISKUS 100/50 [Suspect]
     Indication: ASTHMA
     Route: 055
  2. ADVAIR DISKUS 100/50 [Suspect]
     Dosage: 1PUFF TWICE PER DAY
     Route: 055
     Dates: start: 20100101

REACTIONS (6)
  - PRODUCT QUALITY ISSUE [None]
  - INCORRECT DOSE ADMINISTERED BY DEVICE [None]
  - ASTHMA [None]
  - CONDITION AGGRAVATED [None]
  - PEAK EXPIRATORY FLOW RATE DECREASED [None]
  - DEVICE MALFUNCTION [None]
